FAERS Safety Report 8384097-2 (Version None)
Quarter: 2012Q2

REPORT INFORMATION
  Report Type: 
  Country: None (occurrence: None)
  Receive Date: 20120524
  Receipt Date: 20120522
  Transmission Date: 20120825
  Serious: Yes (Hospitalization)
  Sender: FDA-Public Use
  Company Number: IT-PFIZER INC-2012124249

PATIENT
  Age: 67 Year
  Sex: Female

DRUGS (12)
  1. FUROSEMIDE [Concomitant]
     Dosage: 25 MG, UNK
     Route: 048
  2. CALCITRIOL [Concomitant]
     Dosage: 0.25 UG, UNK
  3. FERROUS SULFATE TAB [Concomitant]
     Dosage: UNK
  4. DOXAZOSIN MESILATE [Concomitant]
     Dosage: 2 MG, UNK
  5. TICLOPIDINE [Concomitant]
     Dosage: 250 MG, UNK
     Route: 048
  6. CITALOPRAM [Concomitant]
     Dosage: 40 MG, UNK
  7. ATORVASTATIN CALCIUM [Concomitant]
     Dosage: UNK
  8. RAMIPRIL [Concomitant]
     Dosage: 5 MG, UNK
  9. AMLODIPINE [Concomitant]
     Dosage: 10 MG
  10. METOPROLOL [Concomitant]
     Dosage: 100 MG, UNK
     Route: 048
  11. ALLOPURINOL [Concomitant]
     Dosage: 300 MG, UNK
     Route: 048
  12. XANAX [Suspect]
     Dosage: 20 DROPS SINGLE
     Route: 048
     Dates: start: 20110113, end: 20110113

REACTIONS (6)
  - SOPOR [None]
  - LOSS OF CONSCIOUSNESS [None]
  - OXYGEN SATURATION DECREASED [None]
  - DROP ATTACKS [None]
  - OVERDOSE [None]
  - BLOOD PRESSURE ABNORMAL [None]
